FAERS Safety Report 7405351-4 (Version None)
Quarter: 2011Q2

REPORT INFORMATION
  Report Type: 
  Country: None (occurrence: None)
  Receive Date: 20110408
  Receipt Date: 20110119
  Transmission Date: 20111010
  Serious: No
  Sender: FDA-Public Use
  Company Number: DL2011-0042

PATIENT
  Age: 28 Year
  Sex: Female

DRUGS (4)
  1. DOXYCYCLINE [Concomitant]
  2. MIFEPREX [Suspect]
     Indication: ABORTION INDUCED
     Dosage: 200 MG, ORAL
     Route: 048
     Dates: start: 20100907
  3. MISOPROSTOL [Suspect]
     Dosage: 800 MC, BUCCAL, 800 MCG, RECTALLY
     Route: 002
     Dates: start: 20100908
  4. MISOPROSTOL [Suspect]
     Dosage: 800 MC, BUCCAL, 800 MCG, RECTALLY
     Route: 002
     Dates: start: 20101026

REACTIONS (2)
  - MENORRHAGIA [None]
  - ANAEMIA [None]
